FAERS Safety Report 22397194 (Version 1)
Quarter: 2023Q2

REPORT INFORMATION
  Report Type: Report from Study
  Country: BR (occurrence: BR)
  Receive Date: 20230602
  Receipt Date: 20230602
  Transmission Date: 20230721
  Serious: Yes (Hospitalization, Other)
  Sender: FDA-Public Use
  Company Number: BR-CELLTRION INC.-2022BR020140

PATIENT

DRUGS (1)
  1. INFLIXIMAB [Suspect]
     Active Substance: INFLIXIMAB
     Indication: Crohn^s disease
     Dosage: 4 VIALS EVERY 1 MONTH
     Route: 042
     Dates: start: 202211

REACTIONS (8)
  - C-reactive protein increased [Unknown]
  - Crohn^s disease [Unknown]
  - Dermatitis [Unknown]
  - Flatulence [Unknown]
  - Symptom recurrence [Unknown]
  - Treatment delayed [Unknown]
  - Drug ineffective [Unknown]
  - Intentional product use issue [Unknown]
